FAERS Safety Report 12778072 (Version 2)
Quarter: 2016Q4

REPORT INFORMATION
  Report Type: Report from Study
  Country: US (occurrence: US)
  Receive Date: 20160925
  Receipt Date: 20161015
  Transmission Date: 20170207
  Serious: Yes (Death, Hospitalization)
  Sender: FDA-Public Use
  Company Number: US-ASTRAZENECA-2015SF06728

PATIENT
  Age: 51 Year
  Sex: Male

DRUGS (2)
  1. FARXIGA [Suspect]
     Active Substance: DAPAGLIFLOZIN PROPANEDIOL
     Route: 048
  2. XIGDUO XR [Suspect]
     Active Substance: DAPAGLIFLOZIN PROPANEDIOL\METFORMIN HYDROCHLORIDE
     Route: 048

REACTIONS (9)
  - Blood glucose fluctuation [Unknown]
  - Sciatica [Unknown]
  - Cardiac failure [Fatal]
  - Lung disorder [Fatal]
  - Hepatic failure [Fatal]
  - Speech disorder [Unknown]
  - Abdominal distension [Unknown]
  - Multiple organ dysfunction syndrome [Fatal]
  - Acute kidney injury [Unknown]
